FAERS Safety Report 8867334 (Version 1)
Quarter: 2012Q4

REPORT INFORMATION
  Report Type: 
  Country: US (occurrence: US)
  Receive Date: 20121025
  Receipt Date: 20121025
  Transmission Date: 20130627
  Serious: No
  Sender: FDA-Public Use
  Company Number: US-AMGEN-USASP2012016140

PATIENT
  Age: 43 Year
  Sex: Female

DRUGS (8)
  1. ENBREL [Suspect]
     Indication: PRODUCT USED FOR UNKNOWN INDICATION
     Dosage: 50 mg, qwk
     Route: 058
  2. METHOTREXATE [Concomitant]
     Dosage: 2.5 mg, UNK
  3. WELLBUTRIN [Concomitant]
     Dosage: 150 mg, UNK
  4. FOLIC ACID [Concomitant]
     Dosage: UNK
  5. MULTIVITAMIN                       /00097801/ [Concomitant]
     Dosage: UNK
  6. OMEGA 3                            /01334101/ [Concomitant]
     Dosage: 1200 mg, UNK
  7. VITAMIN C                          /00008001/ [Concomitant]
     Dosage: 500 mg, UNK
  8. CALCIUM MAGNESIUM [Concomitant]
     Dosage: UNK

REACTIONS (1)
  - Psoriasis [Unknown]
